FAERS Safety Report 14901508 (Version 1)
Quarter: 2018Q2

REPORT INFORMATION
  Report Type: Spontaneous
  Country: US (occurrence: US)
  Receive Date: 20180516
  Receipt Date: 20180516
  Transmission Date: 20180711
  Serious: Yes (Other)
  Sender: FDA-Public Use
  Company Number: US-ACS-001101

PATIENT
  Age: 8 Year
  Sex: Male
  Weight: 26.6 kg

DRUGS (5)
  1. PREDNISOLONE ELIXIR (5% ETHANOL V/V) [Suspect]
     Active Substance: PREDNISOLONE SODIUM PHOSPHATE
     Indication: ASTHMA
     Route: 048
  2. IBUPROFEN. [Concomitant]
     Active Substance: IBUPROFEN
     Route: 048
  3. CEFTRIAXONE. [Suspect]
     Active Substance: CEFTRIAXONE
     Indication: PNEUMONIA
     Route: 041
  4. ACETAMINOPHEN. [Concomitant]
     Active Substance: ACETAMINOPHEN
     Route: 048
  5. ALBUTEROL-IPRATROPIUM [Concomitant]
     Active Substance: ALBUTEROL\IPRATROPIUM
     Dosage: 3 CONSECUTIVE DOSES
     Route: 065

REACTIONS (1)
  - Alcohol intolerance [Recovered/Resolved]
